FAERS Safety Report 5811400-7 (Version None)
Quarter: 2008Q3

REPORT INFORMATION
  Report Type: 
  Country: None (occurrence: None)
  Receive Date: 20080716
  Receipt Date: 20080707
  Transmission Date: 20090109
  Serious: Yes (Hospitalization)
  Sender: FDA-Public Use
  Company Number: FR-WYE-H04853208

PATIENT
  Age: 86 Year
  Sex: Female

DRUGS (9)
  1. INIPOMP [Suspect]
     Indication: OESOPHAGITIS
     Route: 048
     Dates: start: 20080519, end: 20080525
  2. LEVOTHYROX [Concomitant]
     Indication: HYPOTHYROIDISM
     Dosage: UNKNOWN
  3. UN-ALFA [Concomitant]
     Dosage: 0.75 MG, UNSPECIFIED FREQUENCY
     Route: 048
  4. FUMAFER [Concomitant]
     Dosage: UNKNOWN
     Route: 048
  5. VASTAREL [Concomitant]
  6. DOLIPRANE [Concomitant]
     Dosage: 500 MG, UNSPECIFIED FREQUENCY
  7. FORLAX [Concomitant]
  8. NEXIUM [Suspect]
     Indication: OESOPHAGITIS
     Dates: start: 20080526, end: 20080528
  9. LOVENOX [Concomitant]
     Dosage: UNKNOWN
     Route: 058
     Dates: start: 20080516

REACTIONS (2)
  - HYPONATRAEMIA [None]
  - INAPPROPRIATE ANTIDIURETIC HORMONE SECRETION [None]
